FAERS Safety Report 18410768 (Version 1)
Quarter: 2020Q4

REPORT INFORMATION
  Report Type: Spontaneous
  Country: US (occurrence: US)
  Receive Date: 20201021
  Receipt Date: 20201021
  Transmission Date: 20210114
  Serious: Yes (Other)
  Sender: FDA-Public Use
  Company Number: US-TEVA-2020-US-1840694

PATIENT
  Sex: Male

DRUGS (10)
  1. TRAMADOL EXTENDED RELEASE-TABLET [Suspect]
     Active Substance: TRAMADOL HYDROCHLORIDE
     Route: 065
  2. HYDROCODONE AND ACETAMINOPHEN [Suspect]
     Active Substance: ACETAMINOPHEN\HYDROCODONE
     Route: 065
  3. HYSINGLA ER [Suspect]
     Active Substance: HYDROCODONE BITARTRATE
     Route: 065
  4. PALLADONE [Suspect]
     Active Substance: HYDROMORPHONE HYDROCHLORIDE
     Route: 065
  5. MORPHINE ER TABLET [Suspect]
     Active Substance: MORPHINE
     Route: 065
  6. OXYFAST [Suspect]
     Active Substance: OXYCODONE
     Route: 065
  7. DHC PLUS [Suspect]
     Active Substance: ACETAMINOPHEN\CAFFEINE\DIHYDROCODEINE BITARTRATE
     Route: 065
  8. MSIR [Suspect]
     Active Substance: MORPHINE SULFATE
     Route: 065
  9. OXYCODONE IMMEDIATE-RELEASE [Suspect]
     Active Substance: OXYCODONE
     Route: 065
  10. HYDROMORPHONE ORAL SOLUTION [Suspect]
     Active Substance: HYDROMORPHONE
     Route: 065

REACTIONS (2)
  - Dependence [Unknown]
  - Substance use disorder [Unknown]
